FAERS Safety Report 20860346 (Version 2)
Quarter: 2022Q2

REPORT INFORMATION
  Report Type: Spontaneous
  Country: US (occurrence: US)
  Receive Date: 20220523
  Receipt Date: 20220614
  Transmission Date: 20220720
  Serious: Yes (Death, Hospitalization, Other)
  Sender: FDA-Public Use
  Company Number: US-BRISTOL-MYERS SQUIBB COMPANY-2022-037072

PATIENT
  Age: 84 Year
  Sex: Male
  Weight: 73 kg

DRUGS (1)
  1. ONUREG [Suspect]
     Active Substance: AZACITIDINE
     Indication: Thrombocytopenia
     Dosage: CYCLE
     Route: 048
     Dates: start: 20220505, end: 20220506

REACTIONS (6)
  - Death [Fatal]
  - Fatigue [Recovered/Resolved]
  - Platelet count decreased [Recovered/Resolved]
  - Pain [Recovered/Resolved]
  - Dyspnoea [Recovered/Resolved]
  - Intentional product use issue [Unknown]

NARRATIVE: CASE EVENT DATE: 20220501
